FAERS Safety Report 21709818 (Version 2)
Quarter: 2022Q4

REPORT INFORMATION
  Report Type: Spontaneous
  Country: KZ (occurrence: KZ)
  Receive Date: 20221210
  Receipt Date: 20221221
  Transmission Date: 20230113
  Serious: Yes (Other)
  Sender: FDA-Public Use
  Company Number: KZ-TEVA-2022-KZ-2833578

PATIENT
  Sex: Male
  Weight: 52 kg

DRUGS (1)
  1. AZITHROMYCIN [Suspect]
     Active Substance: AZITHROMYCIN
     Indication: Tonsillitis
     Dosage: 500

REACTIONS (5)
  - Obstructive airways disorder [Recovered/Resolved]
  - Rash [Unknown]
  - Cough [Unknown]
  - Asthma [Unknown]
  - Product dispensing error [Unknown]
